FAERS Safety Report 20230359 (Version 8)
Quarter: 2024Q3

REPORT INFORMATION
  Report Type: Spontaneous
  Country: CA (occurrence: CA)
  Receive Date: 20211227
  Receipt Date: 20240815
  Transmission Date: 20241016
  Serious: Yes (Death, Life-Threatening, Hospitalization, Disabling, Congenital Anomaly, Other)
  Sender: ABBVIE
  Company Number: CA-ABBVIE-21K-028-4210017-00

PATIENT
  Age: 44 Year
  Sex: Female
  Weight: 70 kg

DRUGS (20)
  1. HUMIRA [Suspect]
     Active Substance: ADALIMUMAB
     Indication: Rheumatoid arthritis
     Route: 058
  2. HUMIRA [Suspect]
     Active Substance: ADALIMUMAB
     Indication: Psoriatic arthropathy
  3. IBUPROFEN [Concomitant]
     Active Substance: IBUPROFEN
     Indication: Product used for unknown indication
     Dosage: NOT SPECIFIED
     Route: 065
  4. CAFFEINE [Concomitant]
     Active Substance: CAFFEINE
     Indication: Product used for unknown indication
     Dosage: NOT SPECIFIED
     Route: 065
  5. ATIVAN [Concomitant]
     Active Substance: LORAZEPAM
     Indication: Product used for unknown indication
     Dosage: NOT SPECIFIED
     Route: 065
  6. SULFASALAZINE [Concomitant]
     Active Substance: SULFASALAZINE
     Indication: Rheumatoid arthritis
     Dosage: NOT SPECIFIED
     Route: 065
  7. GLUCOSAMINE [Concomitant]
     Active Substance: GLUCOSAMINE
     Indication: Product used for unknown indication
     Dosage: NOT SPECIFIED
     Route: 065
  8. PANTOPRAZOLE SODIUM [Concomitant]
     Active Substance: PANTOPRAZOLE SODIUM
     Indication: Product used for unknown indication
  9. PANTOPRAZOLE [Concomitant]
     Active Substance: PANTOPRAZOLE
     Indication: Product used for unknown indication
     Dosage: NOT SPECIFIED
     Route: 065
  10. FISH OIL [Concomitant]
     Active Substance: FISH OIL
     Indication: Product used for unknown indication
     Route: 065
  11. VITAMIN D2 [Concomitant]
     Active Substance: ERGOCALCIFEROL
     Indication: Product used for unknown indication
     Dosage: NOT SPECIFIED
     Route: 065
  12. Atasol [Concomitant]
     Indication: Product used for unknown indication
     Route: 065
  13. CODEINE [Concomitant]
     Active Substance: CODEINE
     Indication: Product used for unknown indication
     Route: 065
  14. LANSOPRAZOLE [Concomitant]
     Active Substance: LANSOPRAZOLE
     Indication: Product used for unknown indication
     Dosage: DELAYED RELEASE
     Route: 065
  15. TYLENOL [Concomitant]
     Active Substance: ACETAMINOPHEN
     Indication: Product used for unknown indication
     Dosage: NOT SPECIFIED
     Route: 065
  16. RAN CYPROTERONE/ETHINYLESTRADIOL [Concomitant]
     Indication: Product used for unknown indication
  17. TYLENOL WITH CODEINE [Concomitant]
     Active Substance: ACETAMINOPHEN\CODEINE PHOSPHATE
     Indication: Product used for unknown indication
  18. ACETAMINOPHEN AND CODEINE [Concomitant]
     Active Substance: ACETAMINOPHEN\CODEINE PHOSPHATE
     Indication: Product used for unknown indication
     Dosage: NOT SPECIFIED
     Route: 065
  19. DESOGESTREL CF [Concomitant]
     Indication: Product used for unknown indication
  20. VITAMIN C [Concomitant]
     Active Substance: ASCORBIC ACID
     Indication: Product used for unknown indication
     Dosage: NOT SPECIFIED
     Route: 065

REACTIONS (59)
  - Deep vein thrombosis postoperative [Fatal]
  - Pemphigus [Fatal]
  - Hand deformity [Fatal]
  - Autoimmune disorder [Fatal]
  - Drug intolerance [Fatal]
  - Fatigue [Fatal]
  - Sleep disorder due to general medical condition, insomnia type [Fatal]
  - Glossodynia [Fatal]
  - Irritable bowel syndrome [Fatal]
  - Duodenal ulcer perforation [Fatal]
  - Maternal exposure during pregnancy [Unknown]
  - Weight increased [Fatal]
  - Gait inability [Fatal]
  - Stomatitis [Fatal]
  - Muscle injury [Fatal]
  - Musculoskeletal stiffness [Fatal]
  - Contusion [Fatal]
  - Gastrointestinal disorder [Fatal]
  - Condition aggravated [Fatal]
  - Infusion related reaction [Fatal]
  - Confusional state [Fatal]
  - Arthropathy [Fatal]
  - Impaired healing [Fatal]
  - Alopecia [Fatal]
  - Infection [Fatal]
  - Peripheral swelling [Fatal]
  - Pruritus [Fatal]
  - Discomfort [Fatal]
  - Swelling [Fatal]
  - Road traffic accident [Fatal]
  - Rheumatoid arthritis [Fatal]
  - Urticaria [Fatal]
  - Helicobacter infection [Fatal]
  - Wound [Fatal]
  - Dyspnoea [Fatal]
  - Chest pain [Fatal]
  - Treatment failure [Fatal]
  - Folliculitis [Fatal]
  - Systemic lupus erythematosus [Fatal]
  - Lower respiratory tract infection [Fatal]
  - Hepatic enzyme increased [Fatal]
  - Lower limb fracture [Fatal]
  - Drug ineffective [Fatal]
  - Pericarditis [Fatal]
  - Abdominal discomfort [Fatal]
  - Blister [Fatal]
  - Synovitis [Fatal]
  - Therapy non-responder [Fatal]
  - Nasopharyngitis [Fatal]
  - Drug hypersensitivity [Fatal]
  - Rash [Fatal]
  - Asthma [Fatal]
  - Pyrexia [Fatal]
  - Sinusitis [Fatal]
  - Product use issue [Fatal]
  - Psoriatic arthropathy [Fatal]
  - Contraindicated product administered [Fatal]
  - Liver injury [Fatal]
  - Off label use [Fatal]
